FAERS Safety Report 22621642 (Version 7)
Quarter: 2024Q3

REPORT INFORMATION
  Report Type: Spontaneous
  Country: US (occurrence: US)
  Receive Date: 20230620
  Receipt Date: 20240904
  Transmission Date: 20241017
  Serious: Yes (Hospitalization)
  Sender: PFIZER
  Company Number: US-PFIZER INC-US-GBT-018735

PATIENT
  Age: 47 Year
  Sex: Male
  Weight: 73 kg

DRUGS (12)
  1. OXBRYTA [Suspect]
     Active Substance: VOXELOTOR
     Indication: Sickle cell disease
     Dosage: 300 MG, 1X/DAY
     Route: 048
     Dates: start: 202207, end: 2022
  2. OXBRYTA [Suspect]
     Active Substance: VOXELOTOR
     Dosage: 300 MG, 1X/DAY
     Route: 048
     Dates: start: 202210
  3. OXBRYTA [Suspect]
     Active Substance: VOXELOTOR
     Dosage: 300 MG, 1X/DAY
     Route: 048
     Dates: end: 2023
  4. FOLIC ACID [Concomitant]
     Active Substance: FOLIC ACID
     Indication: Sickle cell disease
     Dosage: 1 MG PER TABLET, ONCE A DAY
  5. FOLIC ACID [Concomitant]
     Active Substance: FOLIC ACID
     Dosage: 4MG EVERY DAY PILL SWALLOW IT
     Route: 048
  6. HYDROXYUREA [Concomitant]
     Active Substance: HYDROXYUREA
     Indication: Sickle cell disease
     Dosage: 500 MG PER CAPSULE; ONCE A DAY
  7. HYDROXYUREA [Concomitant]
     Active Substance: HYDROXYUREA
     Indication: Haemoglobin increased
  8. METOPROLOL [Concomitant]
     Active Substance: METOPROLOL
     Indication: Hypertension
     Dosage: 25 MG, 2X/DAY
  9. METOPROLOL [Concomitant]
     Active Substance: METOPROLOL
     Dosage: 25 MG, DAILY
     Route: 048
     Dates: start: 2015
  10. FAMOTIDINE [Concomitant]
     Active Substance: FAMOTIDINE
     Indication: Abdominal discomfort
     Dosage: 20 MG, DAILY
     Route: 048
     Dates: start: 2015
  11. B1 [Concomitant]
     Indication: Vitamin supplementation
     Dosage: UNK, 1X/DAY
     Dates: start: 2024
  12. DAILY VITE [ASCORBIC ACID;CALCIUM PANTOTHENATE;COLECALCIFEROL;CYANOCOB [Concomitant]
     Indication: Vitamin supplementation
     Dosage: UNK, 1X/DAY

REACTIONS (5)
  - Sickle cell anaemia with crisis [Unknown]
  - Back pain [Recovered/Resolved]
  - Abdominal pain upper [Recovered/Resolved]
  - Off label use [Unknown]
  - Intentional product misuse [Unknown]
